FAERS Safety Report 9269856 (Version 1)
Quarter: 2013Q2

REPORT INFORMATION
  Report Type: Spontaneous
  Country: DE (occurrence: DE)
  Receive Date: 20130503
  Receipt Date: 20130503
  Transmission Date: 20140414
  Serious: Yes (Other)
  Sender: FDA-Public Use
  Company Number: DE-SANOFI-AVENTIS-2013SA043951

PATIENT
  Sex: Female
  Weight: 94 kg

DRUGS (1)
  1. MULTAQ [Suspect]
     Indication: ATRIAL FIBRILLATION
     Dosage: DAILY DOSE: 800 MG MILLIGRAM(S) EVERY DAY
     Route: 048
     Dates: start: 20121219, end: 20121223

REACTIONS (3)
  - Dizziness [Recovering/Resolving]
  - Respiratory distress [Recovering/Resolving]
  - Asthenia [Recovering/Resolving]
